FAERS Safety Report 8848977 (Version 1)
Quarter: 2012Q4

REPORT INFORMATION
  Report Type: Spontaneous
  Country: US (occurrence: None)
  Receive Date: 20121016
  Receipt Date: 20121016
  Transmission Date: 20130627
  Serious: Yes (Hospitalization)
  Sender: FDA-Public Use
  Company Number: SP06127

PATIENT
  Age: 55 Year
  Sex: Female

DRUGS (3)
  1. APRISO [Suspect]
     Route: 048
     Dates: start: 2009
  2. LOVASTATIN [Concomitant]
  3. SYNTHROID [Concomitant]

REACTIONS (1)
  - Diarrhoea [None]
